FAERS Safety Report 13853380 (Version 1)
Quarter: 2017Q3

REPORT INFORMATION
  Report Type: Spontaneous
  Country: US (occurrence: US)
  Receive Date: 20170810
  Receipt Date: 20170810
  Transmission Date: 20171127
  Serious: Yes (Life-Threatening, Hospitalization)
  Sender: FDA-Public Use
  Company Number: None

PATIENT
  Age: 42 Year
  Sex: Female
  Weight: 158 kg

DRUGS (1)
  1. LISINOPRIL. [Suspect]
     Active Substance: LISINOPRIL
     Indication: HYPERTENSION
     Route: 048

REACTIONS (6)
  - Dyspnoea [None]
  - Respiratory failure [None]
  - Swollen tongue [None]
  - Upper airway obstruction [None]
  - Dysphagia [None]
  - Pneumonia [None]

NARRATIVE: CASE EVENT DATE: 20170728
